FAERS Safety Report 6618515-4 (Version None)
Quarter: 2010Q1

REPORT INFORMATION
  Report Type: 
  Country: None (occurrence: None)
  Receive Date: 20100308
  Receipt Date: 20100226
  Transmission Date: 20100710
  Serious: Yes (Hospitalization, Other)
  Sender: FDA-Public Use
  Company Number: US-ELI_LILLY_AND_COMPANY-US201001002373

PATIENT
  Sex: Male
  Weight: 73.469 kg

DRUGS (13)
  1. BYETTA [Suspect]
     Indication: TYPE 2 DIABETES MELLITUS
     Dosage: 5 UG, 2/D
     Route: 058
     Dates: start: 20080701, end: 20080801
  2. BYETTA [Suspect]
     Dosage: 10 UG, 2/D
     Route: 058
     Dates: start: 20080801
  3. ACTOS [Concomitant]
     Indication: TYPE 2 DIABETES MELLITUS
     Dosage: UNK, UNKNOWN
     Dates: end: 20091101
  4. METFORMIN HYDROCHLORIDE [Concomitant]
     Indication: TYPE 2 DIABETES MELLITUS
  5. GLYBURIDE [Concomitant]
     Indication: TYPE 2 DIABETES MELLITUS
  6. CARVEDILOL [Concomitant]
  7. GLIPIZIDE [Concomitant]
  8. ALDACTONE [Concomitant]
  9. PLAVIX [Concomitant]
  10. LISINOPRIL [Concomitant]
  11. LASIX [Concomitant]
  12. LIPITOR [Concomitant]
  13. DIGOXIN [Concomitant]

REACTIONS (15)
  - ASTHENIA [None]
  - BLOOD GLUCOSE INCREASED [None]
  - CARDIAC DISORDER [None]
  - CARDIAC FAILURE CONGESTIVE [None]
  - DECREASED APPETITE [None]
  - DRUG ADMINISTRATION ERROR [None]
  - DRUG INEFFECTIVE [None]
  - DYSPNOEA [None]
  - FEELING ABNORMAL [None]
  - HEART RATE INCREASED [None]
  - LUNG DISORDER [None]
  - NAUSEA [None]
  - ORTHOPNOEA [None]
  - PULMONARY OEDEMA [None]
  - WEIGHT DECREASED [None]
